FAERS Safety Report 14188533 (Version 1)
Quarter: 2017Q4

REPORT INFORMATION
  Report Type: Spontaneous
  Country: US (occurrence: US)
  Receive Date: 20171114
  Receipt Date: 20171114
  Transmission Date: 20180321
  Serious: No
  Sender: FDA-Public Use
  Company Number: US-BAUSCH-BL-2017-022627

PATIENT
  Age: 33 Year
  Sex: Female
  Weight: 45.4 kg

DRUGS (4)
  1. APRISO [Suspect]
     Active Substance: MESALAMINE
     Route: 048
     Dates: start: 201701
  2. ENTOCORT [Concomitant]
     Active Substance: BUDESONIDE
     Indication: PRODUCT USED FOR UNKNOWN INDICATION
     Dosage: 3 CAPSULES ONCE DAILY
     Route: 048
     Dates: start: 201702
  3. CLONAZEPAM. [Concomitant]
     Active Substance: CLONAZEPAM
     Indication: INSOMNIA
     Dosage: AS NEEDED PRN
     Route: 048
  4. APRISO [Suspect]
     Active Substance: MESALAMINE
     Indication: CROHN^S DISEASE
     Dosage: 4 CAPSULES DAILY
     Route: 048
     Dates: start: 201610

REACTIONS (5)
  - Abdominal pain [Unknown]
  - Medication residue present [Unknown]
  - Off label use [Not Recovered/Not Resolved]
  - Diarrhoea [Unknown]
  - Drug ineffective for unapproved indication [Unknown]

NARRATIVE: CASE EVENT DATE: 201610
